FAERS Safety Report 15707055 (Version 1)
Quarter: 2018Q4

REPORT INFORMATION
  Report Type: Report from Study
  Country: AU (occurrence: AU)
  Receive Date: 20181210
  Receipt Date: 20181210
  Transmission Date: 20190205
  Serious: Yes (Hospitalization)
  Sender: FDA-Public Use
  Company Number: AU-MYLANLABS-2018M1091418

PATIENT
  Sex: Male

DRUGS (1)
  1. CLOZARIL [Suspect]
     Active Substance: CLOZAPINE
     Indication: SCHIZOPHRENIA
     Dosage: 750 MILLIGRAM
     Route: 048
     Dates: start: 20050825

REACTIONS (2)
  - Influenza [Recovering/Resolving]
  - Antipsychotic drug level increased [Unknown]

NARRATIVE: CASE EVENT DATE: 2018
